FAERS Safety Report 9015503 (Version 2)
Quarter: 2013Q2

REPORT INFORMATION
  Report Type: Spontaneous
  Country: IT (occurrence: IT)
  Receive Date: 20130116
  Receipt Date: 20130405
  Transmission Date: 20140414
  Serious: Yes (Death, Other)
  Sender: FDA-Public Use
  Company Number: PHHY2013IT003544

PATIENT
  Sex: Male

DRUGS (4)
  1. ZOMETA [Suspect]
     Indication: PLASMA CELL MYELOMA
     Dosage: 4 MG, QMO
     Route: 042
     Dates: start: 20030528, end: 20030910
  2. AREDIA [Suspect]
     Indication: PLASMA CELL MYELOMA
     Dosage: 90 MG, QMO
     Route: 042
     Dates: start: 20040512, end: 20040826
  3. AREDIA [Suspect]
     Dosage: UNK UKN, UNK
     Route: 042
  4. SOLDESAM [Concomitant]
     Indication: OSTEOARTHRITIS
     Dosage: 20 MG, UNK
     Route: 048
     Dates: start: 20040512, end: 20040826

REACTIONS (1)
  - Osteonecrosis of jaw [Fatal]
